FAERS Safety Report 15263743 (Version 2)
Quarter: 2018Q3

REPORT INFORMATION
  Report Type: Report from Study
  Country: CA (occurrence: CA)
  Receive Date: 20180810
  Receipt Date: 20180814
  Transmission Date: 20181010
  Serious: Yes (Other)
  Sender: FDA-Public Use
  Company Number: CA-ROCHE-2166779

PATIENT
  Age: 63 Year
  Sex: Female

DRUGS (9)
  1. DIPHENHYDRAMINE. [Concomitant]
     Active Substance: DIPHENHYDRAMINE
     Indication: PREMEDICATION
     Route: 048
     Dates: start: 20170711
  2. METHYLPREDNISOLONE. [Concomitant]
     Active Substance: METHYLPREDNISOLONE
     Indication: PREMEDICATION
     Route: 042
     Dates: start: 20170711
  3. ACETAMINOPHEN. [Concomitant]
     Active Substance: ACETAMINOPHEN
     Indication: PREMEDICATION
     Route: 048
     Dates: start: 20170711
  4. METHOTREXATE. [Concomitant]
     Active Substance: METHOTREXATE
  5. PAROXETINE. [Concomitant]
     Active Substance: PAROXETINE
  6. RITUXAN [Suspect]
     Active Substance: RITUXIMAB
     Indication: RHEUMATOID ARTHRITIS
     Route: 042
     Dates: start: 20170711
  7. FOLIC ACID. [Concomitant]
     Active Substance: FOLIC ACID
  8. QUETIAPINE. [Concomitant]
     Active Substance: QUETIAPINE
  9. OXYNEO [Concomitant]
     Active Substance: OXYCODONE

REACTIONS (2)
  - Blood pressure increased [Unknown]
  - Limb injury [Not Recovered/Not Resolved]

NARRATIVE: CASE EVENT DATE: 201807
